FAERS Safety Report 4812970-8 (Version None)
Quarter: 2005Q4

REPORT INFORMATION
  Report Type: 
  Country: None (occurrence: None)
  Receive Date: 20051026
  Receipt Date: 20051010
  Transmission Date: 20060501
  Serious: Yes (Other)
  Sender: FDA-Public Use
  Company Number: US_0501111344

PATIENT
  Age: 28 Year
  Sex: Male
  Weight: 184 kg

DRUGS (3)
  1. ZYPREXA [Suspect]
     Indication: BIPOLAR DISORDER
     Dosage: 10 MG/ 1 DAY
     Dates: start: 20020326
  2. LITHOBID [Concomitant]
  3. SEROQUEL [Concomitant]

REACTIONS (12)
  - AMNESIA [None]
  - DIABETES MELLITUS INADEQUATE CONTROL [None]
  - DIABETES MELLITUS NON-INSULIN-DEPENDENT [None]
  - DYSARTHRIA [None]
  - HYPERGLYCAEMIA [None]
  - HYPERLIPIDAEMIA [None]
  - HYPERTENSION [None]
  - HYPERTRIGLYCERIDAEMIA [None]
  - INCREASED APPETITE [None]
  - METABOLIC SYNDROME [None]
  - OBESITY [None]
  - TREATMENT NONCOMPLIANCE [None]
